FAERS Safety Report 16055405 (Version 1)
Quarter: 2019Q1

REPORT INFORMATION
  Report Type: Report from Study
  Country: FR (occurrence: FR)
  Receive Date: 20190311
  Receipt Date: 20190311
  Transmission Date: 20190418
  Serious: Yes (Other)
  Sender: FDA-Public Use
  Company Number: FR-AEGERION PHARMACEUTICAL, INC-AEGR004166

PATIENT

DRUGS (2)
  1. METRELEPTIN [Suspect]
     Active Substance: METRELEPTIN
     Indication: PRODUCT USED FOR UNKNOWN INDICATION
     Dosage: 0.04 MG/KG/DAY
  2. METRELEPTIN [Suspect]
     Active Substance: METRELEPTIN
     Dosage: UNK

REACTIONS (5)
  - Low density lipoprotein increased [Unknown]
  - Alanine aminotransferase increased [Unknown]
  - Condition aggravated [Unknown]
  - Blood glucose increased [Unknown]
  - Gamma-glutamyltransferase increased [Unknown]

NARRATIVE: CASE EVENT DATE: 2018
